FAERS Safety Report 22840285 (Version 2)
Quarter: 2025Q2

REPORT INFORMATION
  Report Type: Spontaneous
  Country: NL (occurrence: NL)
  Receive Date: 20230819
  Receipt Date: 20250528
  Transmission Date: 20250716
  Serious: Yes (Hospitalization)
  Sender: AUROBINDO
  Company Number: NL-AUROBINDO-AUR-APL-2023-053410

PATIENT
  Sex: Male

DRUGS (2)
  1. PREDNISOLONE [Suspect]
     Active Substance: PREDNISOLONE
     Indication: Herpes zoster infection neurological
     Route: 065
     Dates: start: 20220308
  2. GABAPENTIN [Concomitant]
     Active Substance: GABAPENTIN
     Indication: Herpes zoster
     Route: 065
     Dates: start: 20230226

REACTIONS (1)
  - Infection masked [Unknown]
